FAERS Safety Report 5657476-1 (Version None)
Quarter: 2008Q1

REPORT INFORMATION
  Report Type: 
  Country: None (occurrence: None)
  Receive Date: 20080310
  Receipt Date: 20080227
  Transmission Date: 20080703
  Serious: Yes (Other)
  Sender: FDA-Public Use
  Company Number: US-PFIZER INC-2008019072

PATIENT
  Sex: Female
  Weight: 104.54 kg

DRUGS (4)
  1. LYRICA [Suspect]
     Indication: FIBROMYALGIA
  2. LISINOPRIL [Concomitant]
     Route: 048
  3. ALBUTEROL [Concomitant]
     Route: 048
  4. REQUIP [Concomitant]
     Route: 048

REACTIONS (5)
  - CONVULSION [None]
  - DYSKINESIA [None]
  - GAIT DISTURBANCE [None]
  - GRIP STRENGTH DECREASED [None]
  - MUSCLE SPASMS [None]
